FAERS Safety Report 7852640-5 (Version None)
Quarter: 2011Q4

REPORT INFORMATION
  Report Type: 
  Country: None (occurrence: None)
  Receive Date: 20111026
  Receipt Date: 20111018
  Transmission Date: 20120403
  Serious: Yes (Hospitalization)
  Sender: FDA-Public Use
  Company Number: BR-GLAXOSMITHKLINE-B0710889C

PATIENT
  Sex: Female
  Weight: 84.5 kg

DRUGS (1)
  1. RETIGABINE [Suspect]
     Indication: PARTIAL SEIZURES
     Route: 048
     Dates: start: 20070525

REACTIONS (4)
  - NEUTROPENIA [None]
  - HYPERSENSITIVITY [None]
  - PYREXIA [None]
  - RASH [None]
